FAERS Safety Report 14941435 (Version 1)
Quarter: 2018Q2

REPORT INFORMATION
  Report Type: Spontaneous
  Country: RS (occurrence: RS)
  Receive Date: 20180526
  Receipt Date: 20180526
  Transmission Date: 20180711
  Serious: Yes (Death, Hospitalization, Other)
  Sender: FDA-Public Use
  Company Number: RS-ACCORD-067387

PATIENT
  Age: 33 Year
  Sex: Male

DRUGS (5)
  1. GRANULOCYTE COLONY STIMULATING [Concomitant]
     Active Substance: GRANULOCYTE COLONY-STIMULATING FACTOR NOS
     Indication: LEUKOPENIA
  2. TACROLIMUS. [Suspect]
     Active Substance: TACROLIMUS
     Indication: IMMUNOSUPPRESSION
  3. BASILIXIMAB [Suspect]
     Active Substance: BASILIXIMAB
     Indication: IMMUNOSUPPRESSION
     Dosage: 20 MG ON DAYS 0 AND 4
  4. MYCOPHENOLIC ACID. [Suspect]
     Active Substance: MYCOPHENOLIC ACID
     Indication: IMMUNOSUPPRESSION
  5. VALGANCICLOVIR/VALGANCICLOVIR HYDROCHLORIDE [Concomitant]
     Indication: CYTOMEGALOVIRUS INFECTION

REACTIONS (6)
  - Hodgkin^s disease [Fatal]
  - Diffuse large B-cell lymphoma [Fatal]
  - Urinary tract infection [Unknown]
  - Diarrhoea [Unknown]
  - Anaemia [Unknown]
  - Leukopenia [Unknown]
